FAERS Safety Report 8239619-9 (Version None)
Quarter: 2012Q1

REPORT INFORMATION
  Report Type: 
  Country: None (occurrence: None)
  Receive Date: 20120328
  Receipt Date: 20120315
  Transmission Date: 20120608
  Serious: Yes (Death, Hospitalization)
  Sender: FDA-Public Use
  Company Number: 2012SP000696

PATIENT
  Age: 85 Year
  Sex: Male

DRUGS (4)
  1. ARICEPT [Concomitant]
     Indication: DEMENTIA
     Route: 048
  2. ZENBRON [Concomitant]
     Indication: BRONCHITIS CHRONIC
     Route: 048
  3. TULOBUTEROL [Concomitant]
     Indication: ASTHMA
     Dates: start: 20090624
  4. ALVESCO [Suspect]
     Indication: ASTHMA
     Route: 055
     Dates: start: 20100210

REACTIONS (2)
  - PNEUMONIA [None]
  - CEREBROVASCULAR DISORDER [None]
